FAERS Safety Report 11192156 (Version 2)
Quarter: 2015Q3

REPORT INFORMATION
  Report Type: Report from Study
  Country: CH (occurrence: CH)
  Receive Date: 20150616
  Receipt Date: 20150702
  Transmission Date: 20151125
  Serious: Yes (Hospitalization)
  Sender: FDA-Public Use
  Company Number: CH-BIOGENIDEC-2015BI080142

PATIENT
  Age: 62 Year
  Sex: Female

DRUGS (21)
  1. AVONEX [Suspect]
     Active Substance: INTERFERON BETA-1A
     Indication: MULTIPLE SCLEROSIS
     Route: 030
     Dates: start: 20060503, end: 201505
  2. SPIRIVA [Concomitant]
     Active Substance: TIOTROPIUM BROMIDE MONOHYDRATE
  3. UVAMIN [Concomitant]
     Active Substance: NITROFURANTOIN
  4. METAMUCIL [Concomitant]
     Active Substance: PLANTAGO SEED
  5. CALCIUM GLYCEROPHOSPHATE\CELLULOSE\POLYETHYLENE GLYCOL\SACCHARIN SODIUM\SODIUM HYDROXIDE\SODIUM LAURYL SULFATE\SODIUM MAGNESIUM SILICATE\SODIUM MONOFLUOROPHOSPHATE\SORBITOL\WATER [Concomitant]
     Active Substance: CALCIUM GLYCEROPHOSPHATE\POLYETHYLENE GLYCOLS\POWDERED CELLULOSE\SACCHARIN SODIUM DIHYDRATE\SODIUM HYDROXIDE\SODIUM LAURYL SULFATE\SODIUM MAGNESIUM SILICATE\SODIUM MONOFLUOROPHOSPHATE\SORBITOL\WATER
  6. CHOLECALCIFEROL [Concomitant]
     Active Substance: CHOLECALCIFEROL
  7. BONVIVA [Concomitant]
     Active Substance: IBANDRONATE SODIUM
  8. SIMCORA [Concomitant]
     Active Substance: SIMVASTATIN
  9. MAGNESIUM [Concomitant]
     Active Substance: MAGNESIUM
  10. AVONEX [Suspect]
     Active Substance: INTERFERON BETA-1A
     Indication: MULTIPLE SCLEROSIS
     Route: 030
     Dates: start: 201505, end: 20150514
  11. DAFALGAN [Concomitant]
     Active Substance: ACETAMINOPHEN
     Indication: INFLUENZA LIKE ILLNESS
     Dates: start: 20060503
  12. MACROGOL [Concomitant]
     Active Substance: POLYETHYLENE GLYCOLS
  13. LYRICA [Concomitant]
     Active Substance: PREGABALIN
  14. TYLENOL [Concomitant]
     Active Substance: ACETAMINOPHEN
     Indication: INFLUENZA LIKE ILLNESS
  15. SERETIDE [Concomitant]
     Active Substance: FLUTICASONE FUROATE\SALMETEROL XINAFOATE
  16. MUCOFOR [Concomitant]
  17. LODINE [Concomitant]
     Active Substance: ETODOLAC
  18. IBUPROFEN. [Concomitant]
     Active Substance: IBUPROFEN
     Indication: INFLUENZA LIKE ILLNESS
  19. MYOCHOLINE [Concomitant]
     Active Substance: BETHANECHOL CHLORIDE
  20. DAFALGAN [Concomitant]
     Active Substance: ACETAMINOPHEN
  21. SIRDALUD [Concomitant]
     Active Substance: TIZANIDINE

REACTIONS (4)
  - Mobility decreased [Unknown]
  - Disturbance in attention [Recovered/Resolved]
  - Femur fracture [Not Recovered/Not Resolved]
  - Fall [Recovered/Resolved]

NARRATIVE: CASE EVENT DATE: 20150501
